FAERS Safety Report 10312276 (Version 2)
Quarter: 2014Q4

REPORT INFORMATION
  Report Type: Report from Study
  Country: DE (occurrence: TR)
  Receive Date: 20140718
  Receipt Date: 20141230
  Transmission Date: 20150528
  Serious: Yes (Hospitalization)
  Sender: FDA-Public Use
  Company Number: DE-ACTELION-A-US2014-101986

PATIENT
  Age: 58 Year
  Sex: Female

DRUGS (2)
  1. VENTAVIS [Suspect]
     Active Substance: ILOPROST
     Indication: PULMONARY ARTERIAL HYPERTENSION
     Dosage: UNK, FREQUENCY: 6X1
     Route: 055
     Dates: start: 20140626
  2. TRACLEER [Concomitant]
     Active Substance: BOSENTAN\BOSENTAN MONOHYDRATE
     Indication: PULMONARY ARTERIAL HYPERTENSION
     Dosage: UNK
     Route: 048
     Dates: start: 20140622

REACTIONS (9)
  - Trismus [Unknown]
  - Palpitations [Unknown]
  - Hyperhidrosis [Unknown]
  - Tachycardia [Recovered/Resolved]
  - Chest pain [Unknown]
  - Muscle contracture [Recovered/Resolved]
  - General physical health deterioration [Unknown]
  - Cough [Recovered/Resolved]
  - Hypotension [Unknown]

NARRATIVE: CASE EVENT DATE: 20140628
